FAERS Safety Report 10280308 (Version 2)
Quarter: 2014Q4

REPORT INFORMATION
  Report Type: Spontaneous
  Country: AT (occurrence: AT)
  Receive Date: 20140707
  Receipt Date: 20141223
  Transmission Date: 20150528
  Serious: Yes (Hospitalization, Other)
  Sender: FDA-Public Use
  Company Number: AT-ELI_LILLY_AND_COMPANY-AT201406009104

PATIENT
  Age: 37 Year
  Sex: Male

DRUGS (17)
  1. ZYPREXA [Suspect]
     Active Substance: OLANZAPINE
     Indication: BIPOLAR I DISORDER
     Dosage: 10 MG, QD
     Route: 065
     Dates: start: 20140504, end: 20140504
  2. PRAXITEN [Concomitant]
     Active Substance: OXAZEPAM
     Dosage: 45 MG, UNKNOWN
     Route: 065
     Dates: start: 20140513, end: 20140515
  3. PRAXITEN [Concomitant]
     Active Substance: OXAZEPAM
     Dosage: 30 MG, UNKNOWN
     Route: 065
     Dates: start: 20140516, end: 20140518
  4. PRAXITEN [Concomitant]
     Active Substance: OXAZEPAM
     Dosage: 15 MG, UNKNOWN
     Route: 065
     Dates: start: 20140519, end: 20140519
  5. PRAXITEN [Concomitant]
     Active Substance: OXAZEPAM
     Dosage: 7.5 MG, UNKNOWN
     Route: 065
     Dates: start: 20140520, end: 20140520
  6. ZYPREXA [Interacting]
     Active Substance: OLANZAPINE
     Dosage: 10 MG, QD
     Route: 065
     Dates: start: 20140513, end: 20140514
  7. ACEMIN                             /00894001/ [Interacting]
     Active Substance: LISINOPRIL
     Indication: PRODUCT USED FOR UNKNOWN INDICATION
     Dosage: 5 MG, UNKNOWN
     Route: 065
     Dates: start: 20140507
  8. TEGRETOL [Interacting]
     Active Substance: CARBAMAZEPINE
     Dosage: 600 MG, QD
     Route: 065
     Dates: start: 20140513
  9. QUILONORM                          /00033702/ [Interacting]
     Active Substance: LITHIUM CARBONATE
     Dosage: 1350 MG, QD
     Route: 065
     Dates: start: 20140516
  10. TEGRETOL [Interacting]
     Active Substance: CARBAMAZEPINE
     Indication: PRODUCT USED FOR UNKNOWN INDICATION
     Dosage: 200 MG, QD
     Route: 065
     Dates: start: 20140504, end: 20140504
  11. PRAXITEN [Concomitant]
     Active Substance: OXAZEPAM
     Indication: PRODUCT USED FOR UNKNOWN INDICATION
     Dosage: 75 MG, UNKNOWN
     Route: 065
     Dates: start: 20140506, end: 20140507
  12. ZYPREXA [Interacting]
     Active Substance: OLANZAPINE
     Dosage: 20 MG, QD
     Route: 065
     Dates: start: 20140505, end: 20140512
  13. QUILONORM                          /00033702/ [Interacting]
     Active Substance: LITHIUM CARBONATE
     Indication: PRODUCT USED FOR UNKNOWN INDICATION
     Dosage: 1350 MG, QD
     Route: 065
     Dates: start: 20140504, end: 20140507
  14. TEGRETOL [Interacting]
     Active Substance: CARBAMAZEPINE
     Dosage: 400 MG, QD
     Route: 065
     Dates: start: 20140505, end: 20140512
  15. QUILONORM                          /00033702/ [Interacting]
     Active Substance: LITHIUM CARBONATE
     Dosage: 1575 MG, QD
     Route: 065
     Dates: start: 20140508, end: 20140515
  16. ZYPREXA [Interacting]
     Active Substance: OLANZAPINE
     Dosage: 5 MG, QD
     Route: 065
     Dates: start: 20140515, end: 20140517
  17. PRAXITEN [Concomitant]
     Active Substance: OXAZEPAM
     Dosage: 90 MG, UNKNOWN
     Route: 065
     Dates: start: 20140508, end: 20140512

REACTIONS (16)
  - Oedema peripheral [Recovered/Resolved]
  - White blood cell count increased [Unknown]
  - Potentiating drug interaction [Recovered/Resolved]
  - Gamma-glutamyltransferase increased [Unknown]
  - Joint hyperextension [Unknown]
  - Glycosylated haemoglobin increased [Unknown]
  - Glutamate dehydrogenase increased [Unknown]
  - Arthralgia [Unknown]
  - Fatigue [Unknown]
  - Blood creatine phosphokinase increased [Unknown]
  - Blood glucose increased [Unknown]
  - Neutrophil count increased [Unknown]
  - Aspartate aminotransferase increased [Unknown]
  - Blood triglycerides increased [Unknown]
  - Alanine aminotransferase increased [Unknown]
  - Blood alkaline phosphatase increased [Unknown]

NARRATIVE: CASE EVENT DATE: 20140512
